FAERS Safety Report 12649353 (Version 2)
Quarter: 2016Q4

REPORT INFORMATION
  Report Type: Spontaneous
  Country: US (occurrence: US)
  Receive Date: 20160812
  Receipt Date: 20161003
  Transmission Date: 20170207
  Serious: Yes (Other)
  Sender: FDA-Public Use
  Company Number: US-ASTRAZENECA-2016SE85170

PATIENT
  Age: 23364 Day
  Sex: Male
  Weight: 122.9 kg

DRUGS (10)
  1. METFORMIN [Concomitant]
     Active Substance: METFORMIN HYDROCHLORIDE
  2. LANTUS [Concomitant]
     Active Substance: INSULIN GLARGINE
     Dosage: 16 UNITS AQ PM
  3. AVAPRO [Concomitant]
     Active Substance: IRBESARTAN
  4. TRILIPIX [Concomitant]
     Active Substance: FENOFIBRIC ACID
  5. CHOLESTYRAMINE. [Concomitant]
     Active Substance: CHOLESTYRAMINE
     Dosage: 4 GRAMS 0.5 PACKET ORAL TWICE A DAY
  6. DIPHENHYDRAMINE. [Concomitant]
     Active Substance: DIPHENHYDRAMINE
  7. HUMALOG [Concomitant]
     Active Substance: INSULIN LISPRO
  8. BYETTA [Suspect]
     Active Substance: EXENATIDE
     Route: 065
     Dates: start: 20100211, end: 201501
  9. ALLOPURINOL. [Concomitant]
     Active Substance: ALLOPURINOL
  10. CREON [Concomitant]
     Active Substance: PANCRELIPASE AMYLASE\PANCRELIPASE LIPASE\PANCRELIPASE PROTEASE

REACTIONS (1)
  - Pancreatic carcinoma metastatic [Unknown]

NARRATIVE: CASE EVENT DATE: 20141001
